FAERS Safety Report 5787277-5 (Version None)
Quarter: 2008Q2

REPORT INFORMATION
  Report Type: 
  Country: None (occurrence: None)
  Receive Date: 20080625
  Receipt Date: 20070907
  Transmission Date: 20081010
  Serious: No
  Sender: FDA-Public Use
  Company Number: US-ASTRAZENECA-2007UW21205

PATIENT
  Age: 7 Year
  Sex: Male

DRUGS (2)
  1. PULMICORT FLEXHALER [Suspect]
     Indication: ASTHMA
     Dosage: ONE PUFF AM AND ONE PUFF PM
     Route: 055
  2. XOPENEX [Concomitant]

REACTIONS (2)
  - CHEST PAIN [None]
  - COUGH [None]
